FAERS Safety Report 6456497-9 (Version None)
Quarter: 2009Q4

REPORT INFORMATION
  Report Type: 
  Country: None (occurrence: None)
  Receive Date: 20091125
  Receipt Date: 20091119
  Transmission Date: 20100525
  Serious: Yes (Other)
  Sender: FDA-Public Use
  Company Number: DE-BRISTOL-MYERS SQUIBB COMPANY-14868657

PATIENT
  Age: 78 Year
  Sex: Male

DRUGS (1)
  1. COAPROVEL FILM-COATED TABS 150/12.5 MG [Suspect]
     Dosage: 1 DF = 150 MG/12.5 MG, DOSE INCREASED TO 300MG/12.5 MG IN 2009
     Route: 048
     Dates: start: 20060101

REACTIONS (2)
  - BASAL CELL CARCINOMA [None]
  - STOMATITIS [None]
